FAERS Safety Report 4654940-9 (Version None)
Quarter: 2005Q2

REPORT INFORMATION
  Report Type: 
  Country: None (occurrence: None)
  Receive Date: 20050506
  Receipt Date: 20041008
  Transmission Date: 20051028
  Serious: Yes (Disabling, Other)
  Sender: FDA-Public Use
  Company Number: US-MERCK-0410USA01506

PATIENT
  Age: 47 Year
  Sex: Female
  Weight: 69 kg

DRUGS (10)
  1. VIOXX [Suspect]
     Indication: OSTEOARTHRITIS
     Route: 048
     Dates: start: 20030109
  2. VIOXX [Suspect]
     Route: 048
     Dates: start: 20011001, end: 20040930
  3. VIOXX [Suspect]
     Indication: BACK PAIN
     Route: 048
     Dates: start: 20011001, end: 20040930
  4. VIOXX [Suspect]
     Route: 048
     Dates: start: 20030109
  5. ULTRAM [Concomitant]
     Indication: PAIN
     Route: 065
  6. TARKA [Concomitant]
     Indication: HYPERTENSION
     Route: 065
  7. XANAX [Concomitant]
     Indication: ANXIETY
     Route: 065
  8. TRAZODONE HYDROCHLORIDE [Concomitant]
     Indication: DEPRESSION
     Route: 065
  9. EVISTA [Concomitant]
     Route: 065
  10. OXYTROL [Concomitant]
     Indication: INCONTINENCE
     Route: 065

REACTIONS (32)
  - ANAEMIA [None]
  - APPLICATION SITE DERMATITIS [None]
  - BLADDER DISORDER [None]
  - BLOOD CHOLESTEROL INCREASED [None]
  - BLOOD PRESSURE ABNORMAL [None]
  - BLOOD PRESSURE INCREASED [None]
  - COUGH [None]
  - DIARRHOEA [None]
  - DIZZINESS [None]
  - DYSPEPSIA [None]
  - DYSURIA [None]
  - EATING DISORDER [None]
  - GASTROENTERITIS [None]
  - GASTROENTERITIS VIRAL [None]
  - GASTROINTESTINAL DISORDER [None]
  - GASTROOESOPHAGEAL REFLUX DISEASE [None]
  - HAEMORRHAGE [None]
  - HYPERTENSION [None]
  - HYPERTENSIVE HEART DISEASE [None]
  - HYPOAESTHESIA [None]
  - HYPOTHYROIDISM [None]
  - INCONTINENCE [None]
  - INFECTION [None]
  - INSOMNIA [None]
  - NERVE COMPRESSION [None]
  - PAIN [None]
  - PARAESTHESIA [None]
  - POLLAKIURIA [None]
  - RASH [None]
  - SLEEP DISORDER [None]
  - THYROID DISORDER [None]
  - VAGINITIS ATROPHIC [None]
